FAERS Safety Report 7381087-3 (Version None)
Quarter: 2011Q1

REPORT INFORMATION
  Report Type: 
  Country: None (occurrence: None)
  Receive Date: 20110329
  Receipt Date: 20100526
  Transmission Date: 20110831
  Serious: No
  Sender: FDA-Public Use
  Company Number: US-AMGEN-KDL414702

PATIENT
  Age: 30 Year
  Sex: Male

DRUGS (3)
  1. LANTHANUM CARBONATE [Suspect]
     Dosage: 500 MG, UNK
     Route: 048
     Dates: start: 20090301
  2. SENSIPAR [Suspect]
     Indication: PRODUCT USED FOR UNKNOWN INDICATION
  3. SEVELAMER [Suspect]

REACTIONS (4)
  - ABDOMINAL PAIN UPPER [None]
  - ABDOMINAL DISCOMFORT [None]
  - NAUSEA [None]
  - DYSPEPSIA [None]
